FAERS Safety Report 6109531-X (Version None)
Quarter: 2009Q1

REPORT INFORMATION
  Report Type: 
  Country: None (occurrence: None)
  Receive Date: 20090310
  Receipt Date: 20090227
  Transmission Date: 20090719
  Serious: Yes (Other)
  Sender: FDA-Public Use
  Company Number: GB-TEVA-186956ISR

PATIENT
  Age: 55 Year
  Sex: Female

DRUGS (2)
  1. ATENOLOL [Suspect]
  2. NAPROXEN [Suspect]

REACTIONS (2)
  - LICHENOID KERATOSIS [None]
  - STOMATITIS [None]
